FAERS Safety Report 7618785-X (Version None)
Quarter: 2011Q3

REPORT INFORMATION
  Report Type: 
  Country: None (occurrence: None)
  Receive Date: 20110718
  Receipt Date: 20110713
  Transmission Date: 20111222
  Serious: No
  Sender: FDA-Public Use
  Company Number: US-PFIZER INC-2011159204

PATIENT
  Sex: Female
  Weight: 62.1 kg

DRUGS (2)
  1. PREMARIN [Suspect]
     Indication: HYSTERECTOMY
     Dosage: 6.25 MG, 2X/DAY
     Route: 048
     Dates: start: 19790101, end: 20110201
  2. PREMARIN [Suspect]
     Dosage: 6.25 MG, 1X/DAY
     Dates: start: 20110201

REACTIONS (1)
  - ANXIETY [None]
